FAERS Safety Report 7768925-7 (Version None)
Quarter: 2011Q3

REPORT INFORMATION
  Report Type: 
  Country: None (occurrence: None)
  Receive Date: 20110922
  Receipt Date: 20110701
  Transmission Date: 20111222
  Serious: No
  Sender: FDA-Public Use
  Company Number: US-ASTRAZENECA-2010SE60473

PATIENT
  Age: 49 Year
  Sex: Female
  Weight: 72.6 kg

DRUGS (5)
  1. SEROQUEL [Suspect]
     Indication: DEPRESSION
     Route: 048
  2. SEROQUEL [Suspect]
     Route: 048
  3. SEROQUEL [Suspect]
     Indication: BIPOLAR DISORDER
     Route: 048
  4. KLONOPIN [Concomitant]
  5. SEROQUEL [Suspect]
     Route: 048

REACTIONS (4)
  - WRONG DRUG ADMINISTERED [None]
  - INCORRECT DOSE ADMINISTERED [None]
  - INSOMNIA [None]
  - ANXIETY [None]
